FAERS Safety Report 5483978-7 (Version None)
Quarter: 2007Q4

REPORT INFORMATION
  Report Type: 
  Country: None (occurrence: None)
  Receive Date: 20071012
  Receipt Date: 20071002
  Transmission Date: 20080405
  Serious: Yes (Hospitalization)
  Sender: FDA-Public Use
  Company Number: GB-ROCHE-497208

PATIENT
  Age: 42 Year
  Sex: Female
  Weight: 78 kg

DRUGS (9)
  1. XENICAL [Suspect]
     Indication: OBESITY
     Route: 048
     Dates: start: 20070419, end: 20070504
  2. XENICAL [Suspect]
     Route: 048
  3. VENTOLIN [Concomitant]
     Indication: ASTHMA
     Route: 055
  4. LISINOPRIL [Concomitant]
     Indication: HYPERTENSION
     Route: 048
  5. SINGULAIR [Concomitant]
     Indication: ASTHMA
     Route: 048
  6. SERETIDE [Concomitant]
     Indication: ASTHMA
     Route: 055
  7. QVAR 40 [Concomitant]
     Indication: ASTHMA
     Route: 055
  8. SALMETEROL [Concomitant]
     Indication: ASTHMA
     Route: 055
  9. LORATADINE [Concomitant]
     Indication: ASTHMA
     Route: 048

REACTIONS (2)
  - ASTHMA [None]
  - LOWER RESPIRATORY TRACT INFECTION [None]
